FAERS Safety Report 4361356-1 (Version None)
Quarter: 2004Q2

REPORT INFORMATION
  Report Type: 
  Country: None (occurrence: None)
  Receive Date: 20040517
  Receipt Date: 20040429
  Transmission Date: 20050107
  Serious: Yes (Hospitalization)
  Sender: FDA-Public Use
  Company Number: 197000

PATIENT
  Age: 32 Year
  Sex: Female
  Weight: 85.2762 kg

DRUGS (9)
  1. AVONEX ^BIOGEN^ [Suspect]
     Indication: MULTIPLE SCLEROSIS
     Dosage: 30 MCG QW IM
     Route: 030
     Dates: start: 20030501, end: 20030901
  2. AVONEX ^BIOGEN^ [Suspect]
     Indication: MULTIPLE SCLEROSIS
     Dosage: 30 MCG QW IM
     Route: 030
     Dates: start: 20030901, end: 20031201
  3. AVONEX ^BIOGEN^ [Suspect]
     Indication: MULTIPLE SCLEROSIS
     Dosage: 30 MCG QW IM
     Route: 030
     Dates: start: 20040201
  4. LEXAPRO [Concomitant]
  5. WELLBUTRIN [Concomitant]
  6. ZYRTEC [Concomitant]
  7. SINGULAIR [Concomitant]
  8. ALDACTONE [Concomitant]
  9. METFORMIN HCL [Concomitant]

REACTIONS (3)
  - INJECTION SITE HAEMORRHAGE [None]
  - PAIN [None]
  - UTERINE LEIOMYOMA [None]
